FAERS Safety Report 9462460 (Version 1)
Quarter: 2013Q3

REPORT INFORMATION
  Report Type: Spontaneous
  Country: FR (occurrence: FR)
  Receive Date: 20130816
  Receipt Date: 20130816
  Transmission Date: 20140515
  Serious: Yes (Hospitalization)
  Sender: FDA-Public Use
  Company Number: FR-SANOFI-AVENTIS-2012SA092818

PATIENT
  Age: 73 Year
  Sex: Female

DRUGS (8)
  1. LASILIX [Suspect]
     Indication: CARDIAC FAILURE
     Route: 065
     Dates: start: 20121010
  2. PROGLICEM [Suspect]
     Indication: HYPOGLYCAEMIA
     Dosage: STRENGTH- 25MG
     Route: 048
     Dates: start: 20120923
  3. PROGLICEM [Suspect]
     Indication: HYPOGLYCAEMIA
     Dosage: STRENGTH- 25MG
     Route: 048
     Dates: start: 20121002
  4. PROGLICEM [Suspect]
     Indication: HYPOGLYCAEMIA
     Dosage: STRENGTH- 25MG
     Route: 048
     Dates: start: 20121003
  5. PROGLICEM [Suspect]
     Indication: HYPOGLYCAEMIA
     Dosage: STRENGTH- 25MG
     Route: 048
     Dates: start: 20121005
  6. PROGLICEM [Suspect]
     Indication: HYPOGLYCAEMIA
     Dosage: STRENGTH- 100MG
     Route: 048
     Dates: start: 20121008
  7. AUGMENTIN [Suspect]
     Indication: LUNG DISORDER
     Route: 048
     Dates: start: 20121015, end: 20121021
  8. RAMIPRIL [Concomitant]
     Dosage: IN THE MORNING

REACTIONS (8)
  - Liver injury [Recovered/Resolved]
  - Anaemia [Recovered/Resolved]
  - Drug reaction with eosinophilia and systemic symptoms [Recovered/Resolved]
  - Dermatitis exfoliative [Recovered/Resolved]
  - Rash maculo-papular [Recovered/Resolved]
  - Pruritus [Recovered/Resolved]
  - Pyrexia [Recovered/Resolved]
  - Neutropenia [Recovered/Resolved]
